FAERS Safety Report 7958365-X (Version None)
Quarter: 2011Q4

REPORT INFORMATION
  Report Type: 
  Country: None (occurrence: None)
  Receive Date: 20111205
  Receipt Date: 20111130
  Transmission Date: 20120403
  Serious: Yes (Death)
  Sender: FDA-Public Use
  Company Number: US-GILEAD-2011-0046537

PATIENT
  Sex: Female

DRUGS (19)
  1. FERROUS GLUCONATE [Concomitant]
  2. ASPIRIN [Concomitant]
  3. FOLIC ACID [Concomitant]
  4. FOSAMAX [Concomitant]
  5. CENTRUM                            /00554501/ [Concomitant]
  6. SUPER B COMPLEX                    /06442901/ [Concomitant]
  7. ARIMIDEX [Concomitant]
  8. PREDNISONE TAB [Concomitant]
  9. METHOTREXATE [Concomitant]
  10. LETAIRIS [Suspect]
     Indication: PULMONARY HYPERTENSION
     Dosage: 5 MG, UNK
     Route: 048
     Dates: start: 20090421
  11. ATROVENT [Concomitant]
  12. CHOLESTYRAMINE [Concomitant]
  13. BORAGO OFFICINALIS [Concomitant]
  14. OMEPRAZOLE [Concomitant]
  15. OXYGEN [Concomitant]
  16. LETAIRIS [Suspect]
     Indication: CONNECTIVE TISSUE DISORDER
  17. CALCIUM [Concomitant]
  18. FISH OIL [Concomitant]
  19. VITAMIN C                          /00008001/ [Concomitant]

REACTIONS (1)
  - DEATH [None]
